FAERS Safety Report 23355522 (Version 1)
Quarter: 2024Q1

REPORT INFORMATION
  Report Type: Spontaneous
  Country: BR (occurrence: BR)
  Receive Date: 20240102
  Receipt Date: 20240102
  Transmission Date: 20240410
  Serious: Yes (Hospitalization)
  Sender: FDA-Public Use
  Company Number: BR-GLAXOSMITHKLINE-BR2023AMR181055

PATIENT

DRUGS (1)
  1. VALTREX [Suspect]
     Active Substance: VALACYCLOVIR HYDROCHLORIDE
     Indication: Herpes zoster
     Dosage: 500 MG, TID
     Dates: start: 20231218, end: 20231218

REACTIONS (4)
  - Skin irritation [Unknown]
  - Blister [Unknown]
  - Erythema [Unknown]
  - Renal disorder [Unknown]

NARRATIVE: CASE EVENT DATE: 20231219
